FAERS Safety Report 16394140 (Version 1)
Quarter: 2019Q2

REPORT INFORMATION
  Report Type: Spontaneous
  Country: JP (occurrence: JP)
  Receive Date: 20190605
  Receipt Date: 20190605
  Transmission Date: 20190711
  Serious: Yes (Other)
  Sender: FDA-Public Use
  Company Number: JP-PFIZER INC-2019171408

PATIENT
  Age: 42 Year
  Sex: Female
  Weight: 41 kg

DRUGS (6)
  1. NEXIUM [Concomitant]
     Active Substance: ESOMEPRAZOLE MAGNESIUM
     Dosage: 20 MG, 1X/DAY
     Route: 048
     Dates: start: 20180228
  2. AMLODIPINE [AMLODIPINE BESILATE] [Concomitant]
     Active Substance: AMLODIPINE BESYLATE
     Dosage: 5 MG, 1X/DAY
     Route: 048
     Dates: start: 20181030
  3. SUTENT [Suspect]
     Active Substance: SUNITINIB MALATE
     Dosage: 37.5 MG, 1X/DAY
     Route: 048
     Dates: start: 20181016, end: 20181114
  4. SUTENT [Suspect]
     Active Substance: SUNITINIB MALATE
     Indication: PANCREATIC NEUROENDOCRINE TUMOUR
     Dosage: 50 MG, UNK
     Route: 048
  5. SUTENT [Suspect]
     Active Substance: SUNITINIB MALATE
     Dosage: 25 MG, 1X/DAY
     Route: 048
     Dates: start: 20181121
  6. MOSAPRIDE [MOSAPRIDE CITRATE] [Concomitant]
     Dosage: 5 MG, 3X/DAY
     Route: 048
     Dates: start: 20180228

REACTIONS (4)
  - Haemoglobin decreased [Recovered/Resolved]
  - White blood cell count decreased [Unknown]
  - Menorrhagia [Unknown]
  - Anaemia [Unknown]

NARRATIVE: CASE EVENT DATE: 20190417
